FAERS Safety Report 24063893 (Version 1)
Quarter: 2024Q3

REPORT INFORMATION
  Report Type: Spontaneous
  Country: US (occurrence: US)
  Receive Date: 20240709
  Receipt Date: 20240709
  Transmission Date: 20241017
  Serious: No
  Sender: BAUSCH AND LOMB
  Company Number: US-BAUSCH-BL-2024-010164

PATIENT
  Age: 68 Year
  Sex: Female
  Weight: 61.744 kg

DRUGS (2)
  1. PIMECROLIMUS [Suspect]
     Active Substance: PIMECROLIMUS
     Indication: Rosacea
     Route: 061
     Dates: start: 20240412, end: 20240516
  2. PIMECROLIMUS [Suspect]
     Active Substance: PIMECROLIMUS
     Indication: Product use in unapproved indication
     Route: 061
     Dates: start: 2024, end: 2024

REACTIONS (5)
  - Lip swelling [Unknown]
  - Rosacea [Unknown]
  - Skin wrinkling [Unknown]
  - Drug ineffective for unapproved indication [Unknown]
  - Product use in unapproved indication [Unknown]

NARRATIVE: CASE EVENT DATE: 20240101
